FAERS Safety Report 5441120-2 (Version None)
Quarter: 2007Q3

REPORT INFORMATION
  Report Type: 
  Country: None (occurrence: None)
  Receive Date: 20070831
  Receipt Date: 20070822
  Transmission Date: 20080115
  Serious: Yes (Other)
  Sender: FDA-Public Use
  Company Number: US-PFIZER INC-2007059741

PATIENT
  Sex: Male
  Weight: 95.7 kg

DRUGS (1)
  1. CHANTIX [Suspect]
     Indication: SMOKING CESSATION THERAPY

REACTIONS (5)
  - BLEEDING TIME SHORTENED [None]
  - HYPERGLYCAEMIA [None]
  - JAUNDICE [None]
  - LIPIDS [None]
  - SURGERY [None]
